FAERS Safety Report 5135626-3 (Version None)
Quarter: 2006Q4

REPORT INFORMATION
  Report Type: 
  Country: None (occurrence: None)
  Receive Date: 20061026
  Receipt Date: 20061013
  Transmission Date: 20070319
  Serious: Yes (Other)
  Sender: FDA-Public Use
  Company Number: PHEH2006US13026

PATIENT
  Age: 50 Year
  Sex: Male

DRUGS (2)
  1. VITAMINS [Concomitant]
     Dosage: UNK, UNK
  2. DIOVAN [Suspect]
     Indication: HYPERTENSION
     Dosage: 80MG, UNK

REACTIONS (2)
  - BLOOD PRESSURE INADEQUATELY CONTROLLED [None]
  - CONVULSION [None]
